FAERS Safety Report 17778184 (Version 1)
Quarter: 2020Q2

REPORT INFORMATION
  Report Type: Spontaneous
  Country: CA (occurrence: CA)
  Receive Date: 20200513
  Receipt Date: 20200513
  Transmission Date: 20200714
  Serious: Yes (Hospitalization)
  Sender: FDA-Public Use
  Company Number: CA-TEVA-2020-CA-1234414

PATIENT
  Age: 64 Year
  Sex: Male
  Weight: 126 kg

DRUGS (22)
  1. CLONAZEPAM. [Suspect]
     Active Substance: CLONAZEPAM
     Dosage: 2 MILLIGRAM DAILY;
     Route: 048
  2. CLONAZEPAM. [Suspect]
     Active Substance: CLONAZEPAM
     Route: 048
  3. LOXAPINE. [Concomitant]
     Active Substance: LOXAPINE
     Route: 065
  4. MACROGOL 3350 [Concomitant]
     Active Substance: POLYETHYLENE GLYCOL 3350
     Route: 065
  5. CLONAZEPAM. [Suspect]
     Active Substance: CLONAZEPAM
     Dosage: 3 MILLIGRAM DAILY;
     Route: 048
  6. ASPIRIN [ACETYLSALICYLIC ACID] [Concomitant]
     Active Substance: ASPIRIN
     Route: 065
  7. OLANZAPINE. [Concomitant]
     Active Substance: OLANZAPINE
     Route: 065
  8. VITAMIN D3 [Concomitant]
     Active Substance: CHOLECALCIFEROL
     Route: 065
  9. ZOPICLONE [Concomitant]
     Active Substance: ZOPICLONE
  10. ACETAMINOPHEN. [Concomitant]
     Active Substance: ACETAMINOPHEN
     Route: 065
  11. CLOBAZAM. [Concomitant]
     Active Substance: CLOBAZAM
  12. SENNA [Concomitant]
     Active Substance: SENNA LEAF\SENNOSIDES\SENNOSIDES A AND B
     Route: 065
  13. TRIAMCINOLONE [Concomitant]
     Active Substance: TRIAMCINOLONE
     Route: 065
  14. BISACODYL. [Concomitant]
     Active Substance: BISACODYL
     Route: 065
  15. LAMOTRIGINE. [Concomitant]
     Active Substance: LAMOTRIGINE
  16. CLONAZEPAM. [Suspect]
     Active Substance: CLONAZEPAM
     Indication: AGITATION
     Route: 048
  17. CLONAZEPAM. [Suspect]
     Active Substance: CLONAZEPAM
     Route: 048
  18. ACETAZOLAMIDE. [Concomitant]
     Active Substance: ACETAZOLAMIDE
     Route: 065
  19. MEDROXYPROGESTERONE [Concomitant]
     Active Substance: MEDROXYPROGESTERONE
  20. LACTULOSE. [Concomitant]
     Active Substance: LACTULOSE
  21. ZINC OXIDE. [Concomitant]
     Active Substance: ZINC OXIDE
     Route: 065
  22. VALPROIC ACID. [Concomitant]
     Active Substance: VALPROIC ACID

REACTIONS (2)
  - Pneumonia aspiration [Unknown]
  - Somnolence [Unknown]
